FAERS Safety Report 17250515 (Version 9)
Quarter: 2021Q1

REPORT INFORMATION
  Report Type: Report from Study
  Country: US (occurrence: US)
  Receive Date: 20200109
  Receipt Date: 20210210
  Transmission Date: 20210419
  Serious: Yes (Hospitalization, Other)
  Sender: FDA-Public Use
  Company Number: US-SHIRE-US202000360

PATIENT
  Age: 67 Year
  Sex: Male
  Weight: 68.03 kg

DRUGS (32)
  1. TEDUGLUTIDE [Suspect]
     Active Substance: TEDUGLUTIDE
     Indication: SHORT-BOWEL SYNDROME
     Dosage: 3.8 MILLIGRAM, 5/WEEK
     Route: 058
     Dates: start: 20171107
  2. TEDUGLUTIDE [Suspect]
     Active Substance: TEDUGLUTIDE
     Indication: SHORT-BOWEL SYNDROME
     Dosage: 3.8 MILLIGRAM, 5/WEEK
     Route: 058
     Dates: start: 20171107
  3. DIPHENOXYLATE/ATROPINE [Concomitant]
     Active Substance: ATROPINE\DIPHENOXYLATE
     Route: 065
  4. NITROFURANTOIN. [Concomitant]
     Active Substance: NITROFURANTOIN
     Route: 065
  5. TEDUGLUTIDE [Suspect]
     Active Substance: TEDUGLUTIDE
     Indication: COELIAC DISEASE
     Dosage: 3.8 MILLIGRAM,5/WEEK
     Route: 058
  6. TEDUGLUTIDE [Suspect]
     Active Substance: TEDUGLUTIDE
     Dosage: 3.8 MILLIGRAM, 5/WEEK
     Route: 050
  7. TEDUGLUTIDE [Suspect]
     Active Substance: TEDUGLUTIDE
     Dosage: 3.8 MILLIGRAM, 5/WEEK
     Route: 050
  8. CREON [Concomitant]
     Active Substance: PANCRELIPASE AMYLASE\PANCRELIPASE LIPASE\PANCRELIPASE PROTEASE
     Route: 065
  9. ONDANSETRON [Concomitant]
     Active Substance: ONDANSETRON
     Route: 065
  10. TEDUGLUTIDE [Suspect]
     Active Substance: TEDUGLUTIDE
     Indication: DIARRHOEA
     Dosage: 0.3850 UNIT UNK, 1X/DAY:QD
     Route: 058
     Dates: start: 20171120
  11. TEDUGLUTIDE [Suspect]
     Active Substance: TEDUGLUTIDE
     Indication: MALABSORPTION
     Dosage: 3.8 MILLIGRAM, FIVE TIMES WEEKLY
     Route: 058
     Dates: start: 20171205
  12. TEDUGLUTIDE [Suspect]
     Active Substance: TEDUGLUTIDE
     Indication: MALABSORPTION
     Dosage: 3.8 MILLIGRAM, FIVE TIMES WEEKLY
     Route: 058
     Dates: start: 20171205
  13. SYMBICORT [Concomitant]
     Active Substance: BUDESONIDE\FORMOTEROL FUMARATE DIHYDRATE
     Route: 065
  14. ALBUTEROL SULFATE. [Concomitant]
     Active Substance: ALBUTEROL SULFATE
     Route: 065
  15. TEDUGLUTIDE [Suspect]
     Active Substance: TEDUGLUTIDE
     Indication: DIARRHOEA
     Dosage: 0.3850 UNIT UNK, 1X/DAY:QD
     Route: 058
     Dates: start: 20171120
  16. TEDUGLUTIDE [Suspect]
     Active Substance: TEDUGLUTIDE
     Indication: MALABSORPTION
     Dosage: 3.8 MILLIGRAM, FIVE TIMES WEEKLY
     Route: 058
     Dates: start: 20171205
  17. TEDUGLUTIDE [Suspect]
     Active Substance: TEDUGLUTIDE
     Indication: MALABSORPTION
     Dosage: 3.8 MILLIGRAM, FIVE TIMES WEEKLY
     Route: 058
     Dates: start: 20171205
  18. TEDUGLUTIDE [Suspect]
     Active Substance: TEDUGLUTIDE
     Indication: COELIAC DISEASE
     Dosage: 3.8 MILLIGRAM,5/WEEK
     Route: 058
  19. METOPROLOL SUCCINATE. [Concomitant]
     Active Substance: METOPROLOL SUCCINATE
     Route: 065
  20. NAPROXEN. [Concomitant]
     Active Substance: NAPROXEN
     Route: 065
  21. SYNTHROID [Concomitant]
     Active Substance: LEVOTHYROXINE SODIUM
     Route: 065
  22. TEDUGLUTIDE [Suspect]
     Active Substance: TEDUGLUTIDE
     Indication: SHORT-BOWEL SYNDROME
     Dosage: 3.8 MILLIGRAM, 5/WEEK
     Route: 058
     Dates: start: 20171107
  23. TEDUGLUTIDE [Suspect]
     Active Substance: TEDUGLUTIDE
     Dosage: 3.8 MILLIGRAM, 5/WEEK
     Route: 050
  24. OMEPRAZOLE. [Concomitant]
     Active Substance: OMEPRAZOLE
     Route: 065
  25. TEDUGLUTIDE [Suspect]
     Active Substance: TEDUGLUTIDE
     Indication: COELIAC DISEASE
     Dosage: 3.8 MILLIGRAM,5/WEEK
     Route: 058
  26. MELATONIN [Concomitant]
     Active Substance: MELATONIN
     Route: 065
  27. WARFARIN SODIUM. [Concomitant]
     Active Substance: WARFARIN SODIUM
     Route: 065
  28. TEDUGLUTIDE [Suspect]
     Active Substance: TEDUGLUTIDE
     Indication: SHORT-BOWEL SYNDROME
     Dosage: 3.8 MILLIGRAM, 5/WEEK
     Route: 058
     Dates: start: 20171107
  29. TEDUGLUTIDE [Suspect]
     Active Substance: TEDUGLUTIDE
     Indication: DIARRHOEA
     Dosage: 0.3850 UNIT UNK, 1X/DAY:QD
     Route: 058
     Dates: start: 20171120
  30. TEDUGLUTIDE [Suspect]
     Active Substance: TEDUGLUTIDE
     Indication: DIARRHOEA
     Dosage: 0.3850 UNIT UNK, 1X/DAY:QD
     Route: 058
     Dates: start: 20171120
  31. TEDUGLUTIDE [Suspect]
     Active Substance: TEDUGLUTIDE
     Indication: COELIAC DISEASE
     Dosage: 3.8 MILLIGRAM,5/WEEK
     Route: 058
  32. TEDUGLUTIDE [Suspect]
     Active Substance: TEDUGLUTIDE
     Dosage: 3.8 MILLIGRAM, 5/WEEK
     Route: 050

REACTIONS (21)
  - Pain [Unknown]
  - Inability to afford medication [Unknown]
  - Thrombosis [Recovering/Resolving]
  - Weight decreased [Recovering/Resolving]
  - Malnutrition [Unknown]
  - Intentional product use issue [Unknown]
  - Renal disorder [Recovering/Resolving]
  - Cholelithiasis [Recovered/Resolved with Sequelae]
  - Decreased appetite [Not Recovered/Not Resolved]
  - Poor personal hygiene [Unknown]
  - Bladder obstruction [Recovering/Resolving]
  - Intestinal obstruction [Recovered/Resolved]
  - Urinary tract infection [Recovering/Resolving]
  - Pouchitis [Unknown]
  - Drug tolerance [Unknown]
  - Inappropriate schedule of product administration [Unknown]
  - Sepsis [Recovering/Resolving]
  - Fungal infection [Recovering/Resolving]
  - Off label use [Unknown]
  - Pyrexia [Recovering/Resolving]
  - Gastrointestinal bacterial overgrowth [Unknown]

NARRATIVE: CASE EVENT DATE: 20191231
